FAERS Safety Report 10100360 (Version 1)
Quarter: 2014Q2

REPORT INFORMATION
  Report Type: Spontaneous
  Country: US (occurrence: US)
  Receive Date: 20140423
  Receipt Date: 20140423
  Transmission Date: 20141212
  Serious: Yes (Other)
  Sender: FDA-Public Use
  Company Number: US-BAYER-2014-057270

PATIENT
  Age: 37 Year
  Sex: Female

DRUGS (1)
  1. MIRENA [Suspect]
     Indication: CONTRACEPTION
     Dosage: UNK
     Dates: start: 201404

REACTIONS (5)
  - Post procedural haemorrhage [None]
  - Complication of device insertion [None]
  - Presyncope [None]
  - Abdominal discomfort [None]
  - Abdominal pain [None]
